FAERS Safety Report 14167128 (Version 3)
Quarter: 2018Q1

REPORT INFORMATION
  Report Type: Report from Study
  Country: DE (occurrence: DE)
  Receive Date: 20171108
  Receipt Date: 20180321
  Transmission Date: 20180508
  Serious: Yes (Hospitalization)
  Sender: FDA-Public Use
  Company Number: DE-ROCHE-2000078

PATIENT
  Age: 41 Year
  Sex: Female
  Weight: 68 kg

DRUGS (4)
  1. TOLTERODIN [Concomitant]
     Active Substance: TOLTERODINE TARTRATE
     Route: 048
     Dates: start: 200505
  2. OCRELIZUMAB. [Suspect]
     Active Substance: OCRELIZUMAB
     Indication: RELAPSING-REMITTING MULTIPLE SCLEROSIS
     Dosage: DATE OF MOST RECENT DOSE OF OCRELIZUMAB PRIOR TO EVENT ONSET WAS 24/APR/2017 (600 MG)?ADMINISTERED A
     Route: 042
     Dates: start: 20161109
  3. METHYLPREDNISOLONE. [Suspect]
     Active Substance: METHYLPREDNISOLONE
     Indication: PREMEDICATION
     Dosage: SUBSEQUENTLY RECEIVED ON 21/NOV/2016 AND 12/OCT/2017. ?DATE OF MOST RECENT DOSE OF METHYLPREDNISOLON
     Route: 042
     Dates: start: 20161109, end: 20161109
  4. DULOXETINE. [Concomitant]
     Active Substance: DULOXETINE
     Indication: MULTIPLE SCLEROSIS RELAPSE
     Route: 048
     Dates: start: 200505

REACTIONS (1)
  - Pneumonia [Recovered/Resolved]

NARRATIVE: CASE EVENT DATE: 20170831
